FAERS Safety Report 21511328 (Version 1)
Quarter: 2022Q4

REPORT INFORMATION
  Report Type: Spontaneous
  Country: CN (occurrence: CN)
  Receive Date: 20221027
  Receipt Date: 20221027
  Transmission Date: 20230113
  Serious: Yes (Other)
  Sender: FDA-Public Use
  Company Number: None

PATIENT
  Age: 69 Year
  Sex: Female
  Weight: 50 kg

DRUGS (4)
  1. CYCLOPHOSPHAMIDE [Suspect]
     Active Substance: CYCLOPHOSPHAMIDE
     Indication: Breast cancer female
     Dosage: 900 MG, ONCE DAILY (DILUTED IN 250 ML OF 0.9% SODIUM CHLORIDE)
     Route: 041
     Dates: start: 20220922, end: 20220922
  2. SODIUM CHLORIDE [Suspect]
     Active Substance: SODIUM CHLORIDE
     Indication: Medication dilution
     Dosage: 250 ML DILUTED IN 900 MG OF CYCLOPHOSPHAMIDE, ONCE DAILY
     Route: 041
     Dates: start: 20220922, end: 20220922
  3. SODIUM CHLORIDE [Suspect]
     Active Substance: SODIUM CHLORIDE
     Dosage: 250 ML DILUTED WITH 110 MG OF DOCETAXEL, ONCE DAILY
     Route: 041
     Dates: start: 20220922, end: 20220922
  4. DOCETAXEL [Suspect]
     Active Substance: DOCETAXEL
     Indication: Breast cancer female
     Dosage: 110 MG, ONCE DAILY (DILUTED IN 250 ML OF 0.9% SODIUM CHLORIDE)
     Route: 041
     Dates: start: 20220922, end: 20220922

REACTIONS (3)
  - White blood cell count decreased [Recovered/Resolved]
  - Asthenia [Recovered/Resolved]
  - Fatigue [Recovered/Resolved]

NARRATIVE: CASE EVENT DATE: 20221007
